FAERS Safety Report 16529399 (Version 2)
Quarter: 2019Q4

REPORT INFORMATION
  Report Type: Spontaneous
  Country: US (occurrence: US)
  Receive Date: 20190704
  Receipt Date: 20191002
  Transmission Date: 20200122
  Serious: No
  Sender: FDA-Public Use
  Company Number: US-GW PHARMA-201905USGW1651

PATIENT

DRUGS (8)
  1. EPIDIOLEX [Suspect]
     Active Substance: CANNABIDIOL
     Indication: MYOCLONIC EPILEPSY
     Dosage: 2.51 MILLIGRAM/KILOGRAM, 60 MILLIGRAM, BID
     Route: 048
     Dates: start: 20190501, end: 20190520
  2. ONFI [Suspect]
     Active Substance: CLOBAZAM
     Indication: MYOCLONIC EPILEPSY
     Dosage: UNK
     Route: 065
     Dates: start: 2019, end: 20190514
  3. EPIDIOLEX [Suspect]
     Active Substance: CANNABIDIOL
     Dosage: 5.031 MILLIGRAM/KILOGRAM, 120 MILLIGRAM, BID
     Route: 048
     Dates: start: 20190520, end: 20190613
  4. EPIDIOLEX [Suspect]
     Active Substance: CANNABIDIOL
     Dosage: 10.06 MILLIGRAM/KILOGRAM, 240 MILLIGRAM/KILOGRAM, BID
     Route: 048
     Dates: start: 20190614
  5. ONFI [Suspect]
     Active Substance: CLOBAZAM
     Dosage: UNK ((DECREASED DOSE)
     Route: 048
     Dates: start: 20190529, end: 201906
  6. ONFI [Suspect]
     Active Substance: CLOBAZAM
     Dosage: 2.5 MILLIGRAM, QD (AT BEDTIME) (DECREASED DOSE)
     Route: 048
     Dates: start: 20190514, end: 20190529
  7. BRIVIACT [Concomitant]
     Active Substance: BRIVARACETAM
     Indication: MYOCLONIC EPILEPSY
     Dosage: UNK
     Route: 065
     Dates: start: 2019, end: 20190520
  8. BRIVIACT [Concomitant]
     Active Substance: BRIVARACETAM
     Dosage: 100 MILLIGRAM, BID (DECREASED DOSE)
     Route: 065
     Dates: start: 20190520

REACTIONS (5)
  - Seizure [Not Recovered/Not Resolved]
  - Anticonvulsant drug level increased [Unknown]
  - Feeling abnormal [Recovering/Resolving]
  - Irritability [Unknown]
  - Sedation [Unknown]

NARRATIVE: CASE EVENT DATE: 2019
